FAERS Safety Report 4872576-1 (Version None)
Quarter: 2006Q1

REPORT INFORMATION
  Report Type: 
  Country: None (occurrence: None)
  Receive Date: 20060103
  Receipt Date: 20051222
  Transmission Date: 20060701
  Serious: Yes (Hospitalization, Congenital Anomaly)
  Sender: FDA-Public Use
  Company Number: GB200512003682

PATIENT
  Sex: Female
  Weight: 4.2 kg

DRUGS (1)
  1. ZYPREXA [Suspect]
     Dosage: TRANSPLANCENTAL

REACTIONS (10)
  - CONGENITAL ANOMALY [None]
  - CONGENITAL EYELID MALFORMATION [None]
  - DRUG EXPOSURE DURING PREGNANCY [None]
  - FACIAL DYSMORPHISM [None]
  - HYPOTONIA [None]
  - NOSE DEFORMITY [None]
  - POOR SUCKING REFLEX [None]
  - POSTURE ABNORMAL [None]
  - RETROGNATHIA [None]
  - VOMITING [None]
